FAERS Safety Report 4975223-3 (Version None)
Quarter: 2006Q2

REPORT INFORMATION
  Report Type: 
  Country: None (occurrence: None)
  Receive Date: 20060418
  Receipt Date: 20060406
  Transmission Date: 20061013
  Serious: Yes (Death)
  Sender: FDA-Public Use
  Company Number: US-BRISTOL-MYERS SQUIBB COMPANY-13339312

PATIENT
  Age: 83 Year
  Sex: Female

DRUGS (5)
  1. PRAVACHOL [Suspect]
  2. PLAVIX [Suspect]
  3. TOPROL-XL [Concomitant]
  4. AVANDIA [Concomitant]
  5. ISORDIL [Concomitant]

REACTIONS (1)
  - DEATH [None]
